FAERS Safety Report 12114136 (Version 1)
Quarter: 2016Q1

REPORT INFORMATION
  Report Type: Spontaneous
  Country: US (occurrence: None)
  Receive Date: 20160224
  Receipt Date: 20160224
  Transmission Date: 20160526
  Serious: Yes (Disabling)
  Sender: FDA-Public Use
  Company Number: None

PATIENT
  Age: 31 Year
  Sex: Male
  Weight: 90.72 kg

DRUGS (4)
  1. MULTIVITAMIN [Concomitant]
     Active Substance: VITAMINS
  2. CIPROFLOXACIN. [Suspect]
     Active Substance: CIPROFLOXACIN
     Indication: URETHRAL STENOSIS
     Dosage: 1 TABLET
     Route: 048
     Dates: start: 20151006, end: 20151031
  3. CIPROFLOXACIN. [Suspect]
     Active Substance: CIPROFLOXACIN
     Indication: PROSTATITIS
     Dosage: 1 TABLET
     Route: 048
     Dates: start: 20151006, end: 20151031
  4. VITAMIN D [Concomitant]
     Active Substance: CHOLECALCIFEROL

REACTIONS (8)
  - Suicidal ideation [None]
  - Paraesthesia [None]
  - Tendon pain [None]
  - Arthralgia [None]
  - Muscular weakness [None]
  - Fatigue [None]
  - Muscle twitching [None]
  - Depression [None]

NARRATIVE: CASE EVENT DATE: 20151031
